FAERS Safety Report 4462904-3 (Version None)
Quarter: 2004Q3

REPORT INFORMATION
  Report Type: 
  Country: None (occurrence: None)
  Receive Date: 20040927
  Receipt Date: 20040914
  Transmission Date: 20050211
  Serious: Yes (Hospitalization)
  Sender: FDA-Public Use
  Company Number: ST-2004-008078

PATIENT
  Age: 77 Year
  Sex: Male

DRUGS (3)
  1. OLMETEC [Suspect]
     Indication: HYPERTENSION
     Dosage: 20 MG QD PO
     Route: 048
     Dates: start: 20040723, end: 20040817
  2. ASPENON [Suspect]
     Dosage: 20 MG BID PO
     Route: 048
     Dates: start: 20040723, end: 20030817
  3. NORVASC [Concomitant]

REACTIONS (1)
  - CHOLESTASIS [None]
